FAERS Safety Report 7417827-4 (Version None)
Quarter: 2011Q2

REPORT INFORMATION
  Report Type: 
  Country: None (occurrence: None)
  Receive Date: 20110415
  Receipt Date: 20110404
  Transmission Date: 20111010
  Serious: Yes (Hospitalization, Other)
  Sender: FDA-Public Use
  Company Number: DE-ELI_LILLY_AND_COMPANY-DE201104000963

PATIENT
  Age: 51 Year
  Sex: Female
  Weight: 61 kg

DRUGS (8)
  1. TAXILAN [Concomitant]
     Dosage: 125 MG, UNK
     Route: 048
     Dates: start: 20100723, end: 20100805
  2. CYMBALTA [Suspect]
     Indication: DEPRESSION
     Dosage: 60 MG, UNK
     Route: 048
     Dates: end: 20100719
  3. BISOPROLOL [Concomitant]
     Dosage: 2.5 MG, UNK
     Route: 048
     Dates: end: 20100805
  4. CYMBALTA [Suspect]
     Dosage: 90 MG, UNK
     Route: 048
     Dates: start: 20100720
  5. LYRICA [Concomitant]
     Dosage: 150 MG, UNK
     Route: 048
     Dates: start: 20100603, end: 20100810
  6. FALITHROM [Concomitant]
     Dosage: 3 MG, UNK
     Route: 048
  7. ORTOTON [Concomitant]
     Dosage: 750 MG, UNK
     Route: 048
     Dates: end: 20100805
  8. KATADOLON [Concomitant]
     Dosage: 100 MG, UNK
     Route: 048
     Dates: start: 20100726

REACTIONS (7)
  - PULMONARY ARTERIAL PRESSURE INCREASED [None]
  - AMNESIA [None]
  - SYNCOPE [None]
  - FALL [None]
  - HEAD INJURY [None]
  - HAEMATOMA [None]
  - HYPOTENSION [None]
